FAERS Safety Report 9889150 (Version 8)
Quarter: 2014Q2

REPORT INFORMATION
  Report Type: Spontaneous
  Country: US (occurrence: US)
  Receive Date: 20140211
  Receipt Date: 20140416
  Transmission Date: 20141212
  Serious: Yes (Hospitalization, Other)
  Sender: FDA-Public Use
  Company Number: PHEH2011US013427

PATIENT
  Age: 61 Year
  Sex: Female
  Weight: 64.86 kg

DRUGS (3)
  1. AREDIA [Suspect]
     Indication: OSTEOPOROSIS
     Dosage: 90 MG, QMO
     Route: 042
  2. AREDIA [Suspect]
     Indication: MULTIPLE FRACTURES
     Dosage: 60 MG, QMO
     Route: 042
  3. ZOMETA [Suspect]
     Indication: OSTEOPOROSIS
     Dosage: 4 MG, QMO
     Route: 042

REACTIONS (198)
  - Osteonecrosis of jaw [Unknown]
  - Gingival swelling [Unknown]
  - Tooth fracture [Unknown]
  - Tooth loss [Unknown]
  - Oral fungal infection [Unknown]
  - Toothache [Unknown]
  - Cerebrovascular accident [Unknown]
  - Levator syndrome [Unknown]
  - Blindness [Unknown]
  - Nephritis [Unknown]
  - Fungal infection [Unknown]
  - Dementia [Unknown]
  - Macular fibrosis [Unknown]
  - Leukoplakia [Unknown]
  - Hemianopia homonymous [Unknown]
  - Skin cancer [Unknown]
  - Arterial disorder [Unknown]
  - Pulmonary oedema [Unknown]
  - Pelvic abscess [Unknown]
  - Purulent discharge [Unknown]
  - Emphysema [Unknown]
  - Joint stiffness [Unknown]
  - Scoliosis [Unknown]
  - Mastoiditis [Unknown]
  - Hydronephrosis [Unknown]
  - Arteriosclerosis [Unknown]
  - Aortic calcification [Unknown]
  - Vascular calcification [Unknown]
  - Renal disorder [Unknown]
  - Nasal ulcer [Unknown]
  - Pathological fracture [Unknown]
  - Cyst [Unknown]
  - Spondylolisthesis [Unknown]
  - Thrombosis [Unknown]
  - Joint dislocation [Unknown]
  - Proteus infection [Unknown]
  - Osteonecrosis [Unknown]
  - Lung disorder [Unknown]
  - Lung consolidation [Unknown]
  - Large intestine perforation [Unknown]
  - Left ventricular hypertrophy [Unknown]
  - Spigelian hernia [Unknown]
  - Small intestinal obstruction [Unknown]
  - Vaginal infection [Unknown]
  - Dyspnoea paroxysmal nocturnal [Unknown]
  - Pruritus [Unknown]
  - Stomatitis [Unknown]
  - Rhinitis [Unknown]
  - Irritable bowel syndrome [Unknown]
  - Hyperventilation [Unknown]
  - Visual field defect [Unknown]
  - Synovitis [Unknown]
  - Thyroid neoplasm [Unknown]
  - Endocarditis [Unknown]
  - Paronychia [Unknown]
  - Facet joint syndrome [Unknown]
  - Candida infection [Unknown]
  - Coronary artery disease [Unknown]
  - Sweat gland tumour [Unknown]
  - Bone infarction [Unknown]
  - Bone marrow oedema [Unknown]
  - Vaginal haemorrhage [Unknown]
  - Tinnitus [Unknown]
  - Gastroenteritis [Unknown]
  - Antiphospholipid syndrome [Unknown]
  - Leukocytosis [Unknown]
  - Musculoskeletal pain [Unknown]
  - Confusional state [Unknown]
  - Thrombocytosis [Unknown]
  - Vasculitis [Unknown]
  - Neutrophilia [Unknown]
  - Lymphopenia [Unknown]
  - Aortic arteriosclerosis [Unknown]
  - Bursitis [Unknown]
  - Pain in extremity [Unknown]
  - Intervertebral disc disorder [Unknown]
  - Immune system disorder [Unknown]
  - Coagulopathy [Unknown]
  - Myofascial pain syndrome [Unknown]
  - Osteochondrosis [Unknown]
  - Synovial cyst [Unknown]
  - Abdominal distension [Unknown]
  - Hypokinesia [Unknown]
  - Vulvovaginitis [Unknown]
  - Vaginal discharge [Unknown]
  - Embolism [Unknown]
  - Chondromalacia [Unknown]
  - Persecutory delusion [Unknown]
  - Psychotic disorder [Unknown]
  - Hypokalaemia [Unknown]
  - Leukopenia [Unknown]
  - Hypomagnesaemia [Unknown]
  - Hyponatraemia [Unknown]
  - Lung infiltration [Unknown]
  - Upper gastrointestinal haemorrhage [Unknown]
  - Ileus paralytic [Unknown]
  - Bipolar disorder [Unknown]
  - Middle ear effusion [Unknown]
  - Tympanic membrane perforation [Unknown]
  - Bone atrophy [Unknown]
  - Vision blurred [Unknown]
  - Lung infection [Unknown]
  - Rheumatoid arthritis [Unknown]
  - Aggression [Unknown]
  - Accident [Unknown]
  - Foot deformity [Unknown]
  - Kyphosis [Unknown]
  - Eyelid ptosis [Unknown]
  - Chondritis [Unknown]
  - Pulmonary mass [Unknown]
  - Wound [Unknown]
  - Oedema peripheral [Unknown]
  - Pseudomonas infection [Unknown]
  - Aphthous stomatitis [Unknown]
  - Pyelonephritis [Unknown]
  - Radiculitis [Unknown]
  - Hyperkeratosis [Unknown]
  - Cellulitis [Unknown]
  - Hypertonic bladder [Unknown]
  - Oesophagitis [Unknown]
  - Hallucination [Unknown]
  - Tricuspid valve incompetence [Unknown]
  - Left atrial dilatation [Unknown]
  - Pulmonary valve incompetence [Unknown]
  - Sinus bradycardia [Unknown]
  - Nasal septum deviation [Unknown]
  - Ingrowing nail [Recovered/Resolved]
  - Onychomycosis [Recovered/Resolved]
  - Sinus tarsi syndrome [Unknown]
  - Inflammatory bowel disease [Unknown]
  - Abdominal hernia [Unknown]
  - Incarcerated hernia [Unknown]
  - Aortic valve calcification [Unknown]
  - Upper respiratory tract infection [Unknown]
  - Bone fragmentation [Unknown]
  - Limb injury [Unknown]
  - Hand fracture [Unknown]
  - Atrophy [Unknown]
  - Bone disorder [Unknown]
  - Nasal septum ulceration [Unknown]
  - Ear infection [Unknown]
  - Rhinorrhoea [Unknown]
  - Foot fracture [Unknown]
  - Osteomyelitis [Unknown]
  - Cervical radiculopathy [Unknown]
  - Renal mass [Unknown]
  - Hepatic lesion [Unknown]
  - Pancreatic atrophy [Unknown]
  - Hypertrophy [Unknown]
  - Intervertebral disc protrusion [Unknown]
  - Tenosynovitis [Unknown]
  - Bone erosion [Unknown]
  - Muscle spasms [Unknown]
  - Muscle strain [Unknown]
  - Paraesthesia [Unknown]
  - Skin ulcer [Unknown]
  - Radicular syndrome [Unknown]
  - Intervertebral disc space narrowing [Unknown]
  - Osteosclerosis [Unknown]
  - Spinal osteoarthritis [Unknown]
  - Exostosis [Unknown]
  - Lumbar spine flattening [Unknown]
  - Tricuspid valve prolapse [Unknown]
  - Decubitus ulcer [Unknown]
  - Conjunctivitis allergic [Unknown]
  - Osteitis [Unknown]
  - Joint effusion [Unknown]
  - Nasal inflammation [Unknown]
  - Rhinalgia [Unknown]
  - Facial pain [Unknown]
  - Retinal scar [Unknown]
  - Renal colic [Unknown]
  - Rib deformity [Unknown]
  - Polyuria [Unknown]
  - Pollakiuria [Unknown]
  - Neck mass [Unknown]
  - Postmenopausal haemorrhage [Unknown]
  - Pelvic pain [Unknown]
  - Staphylococcal infection [Unknown]
  - Polyp [Unknown]
  - Purpura [Unknown]
  - Xerosis [Unknown]
  - Intertrigo [Unknown]
  - Neurodermatitis [Unknown]
  - Skin papilloma [Unknown]
  - Epistaxis [Unknown]
  - Cardiac murmur [Unknown]
  - Cerumen impaction [Unknown]
  - Diabetic neuropathy [Unknown]
  - Finger deformity [Unknown]
  - Fungal skin infection [Unknown]
  - Cubital tunnel syndrome [Unknown]
  - Abscess limb [Unknown]
  - Bone cyst [Unknown]
  - Arthropathy [Unknown]
  - Osteoarthritis [Unknown]
  - Muscular weakness [Unknown]
  - Hypoglycaemia [Unknown]
